FAERS Safety Report 8889644 (Version 2)
Quarter: 2013Q1

REPORT INFORMATION
  Report Type: Spontaneous
  Country: CA (occurrence: None)
  Receive Date: 20121031
  Receipt Date: 20121031
  Transmission Date: 20140127
  Serious: Yes (Hospitalization, Other)
  Sender: FDA-Public Use
  Company Number: 2012AP003460

PATIENT
  Age: 39 Year
  Sex: Female

DRUGS (9)
  1. VENLAFAXINE [Suspect]
     Indication: PRODUCT USED FOR UNKNOWN INDICATION
  2. SERTRALINE (SERTRALINE) (SERTRALINE) [Suspect]
     Indication: PRODUCT USED FOR UNKNOWN INDICATION
  3. NARATRIPTAN [Suspect]
     Indication: HEADACHE
  4. METHADONE [Suspect]
     Indication: PRODUCT USED FOR UNKNOWN INDICATION
  5. TOPIRAMATE [Concomitant]
  6. ATORVASTATIN (ATORVASTATIN) [Concomitant]
  7. HYDROCHLOROTHIAZIDE\TRIAMTERENE [Concomitant]
  8. QUETIAPINE [Concomitant]
  9. BACLOFEN [Concomitant]

REACTIONS (5)
  - Cerebral vasoconstriction [None]
  - Subarachnoid haemorrhage [None]
  - Agitation [None]
  - Confusional state [None]
  - Consciousness fluctuating [None]
